FAERS Safety Report 8551527 (Version 2)
Quarter: 2012Q4

REPORT INFORMATION
  Report Type: 
  Country: US (occurrence: US)
  Receive Date: 20120508
  Receipt Date: 20120907
  Transmission Date: 20130627
  Serious: Yes (Hospitalization)
  Sender: FDA-Public Use
  Company Number: US-BAYER-2012-043056

PATIENT
  Age: 19 Year
  Sex: Female
  Weight: 56.24 kg

DRUGS (13)
  1. YASMIN [Suspect]
     Indication: CONTRACEPTION
     Dosage: UNK
     Dates: start: 20040928, end: 20050206
  2. MIGQUIN [Concomitant]
     Route: 048
  3. VITAMIN B12 NOS [Concomitant]
     Route: 030
  4. PROTONIX [Concomitant]
  5. FIORICET [Concomitant]
  6. ULTRAM [Concomitant]
  7. OXYCODONE [Concomitant]
  8. SODIUM CHLORIDE [Concomitant]
     Dosage: 2 g, UNK
     Route: 048
  9. NORDETTE [Concomitant]
     Indication: CONTRACEPTION
     Dosage: UNK
     Dates: start: 20050207, end: 20050413
  10. REGLAN [Concomitant]
  11. MIDRIN [Concomitant]
  12. IRON SULFATE [Concomitant]
  13. FENTANYL [Concomitant]

REACTIONS (11)
  - Cerebrovascular accident [None]
  - Intracranial venous sinus thrombosis [None]
  - Pleural effusion [None]
  - Cerebral venous thrombosis [None]
  - Cerebral infarction [None]
  - Injury [None]
  - Pain [None]
  - Hemiparesis [None]
  - Confusional state [None]
  - Balance disorder [None]
  - Pyrexia [None]
